FAERS Safety Report 5324219-0 (Version None)
Quarter: 2007Q2

REPORT INFORMATION
  Report Type: 
  Country: None (occurrence: None)
  Receive Date: 20070507
  Receipt Date: 20070424
  Transmission Date: 20071010
  Serious: Yes (Hospitalization)
  Sender: FDA-Public Use
  Company Number: FABR-11957

PATIENT
  Age: 49 Year
  Sex: Male
  Weight: 71.7 kg

DRUGS (5)
  1. FABRAZYME [Suspect]
     Indication: FABRY'S DISEASE
     Dosage: 1 MG/KG IV
     Route: 042
  2. ATARAX [Concomitant]
  3. PARACETAMOL [Concomitant]
  4. CORTANCYL [Concomitant]
  5. AUGMENTIN [Concomitant]

REACTIONS (6)
  - BRONCHITIS [None]
  - CHILLS [None]
  - HYPOXIA [None]
  - LIVEDO RETICULARIS [None]
  - NASOPHARYNGITIS [None]
  - PYREXIA [None]
